FAERS Safety Report 4886127-9 (Version None)
Quarter: 2006Q1

REPORT INFORMATION
  Report Type: 
  Country: None (occurrence: None)
  Receive Date: 20060120
  Receipt Date: 20060113
  Transmission Date: 20060701
  Serious: Yes (Hospitalization)
  Sender: FDA-Public Use
  Company Number: NO-AVENTIS-200610455GDDC

PATIENT
  Age: 51 Year
  Sex: Female

DRUGS (3)
  1. METRONIDAZOLE [Suspect]
     Indication: VAGINAL INFECTION
     Route: 048
     Dates: start: 20051204, end: 20051209
  2. MORPHINE [Suspect]
     Indication: PROCEDURAL PAIN
  3. AMOXICILLIN [Concomitant]
     Indication: VAGINAL INFECTION
     Route: 048
     Dates: start: 20051204, end: 20051215

REACTIONS (7)
  - ACUTE PSYCHOSIS [None]
  - CONFUSIONAL STATE [None]
  - DELUSION [None]
  - HALLUCINATIONS, MIXED [None]
  - PARANOIA [None]
  - SOMATIC DELUSION [None]
  - VISUAL DISTURBANCE [None]
